FAERS Safety Report 13453994 (Version 1)
Quarter: 2017Q2

REPORT INFORMATION
  Report Type: Spontaneous
  Country: US (occurrence: US)
  Receive Date: 20170418
  Receipt Date: 20170418
  Transmission Date: 20170830
  Serious: No
  Sender: FDA-Public Use
  Company Number: US-ALLERGAN-1675958US

PATIENT
  Age: 70 Year
  Sex: Female
  Weight: 65.76 kg

DRUGS (1)
  1. LATISSE [Suspect]
     Active Substance: BIMATOPROST
     Indication: GROWTH OF EYELASHES
     Dosage: 2 GTT, QHS
     Route: 061
     Dates: start: 2015, end: 20161023

REACTIONS (4)
  - Application site erythema [Recovered/Resolved]
  - Application site discomfort [Recovered/Resolved]
  - Product physical issue [Unknown]
  - Application site irritation [Recovered/Resolved]

NARRATIVE: CASE EVENT DATE: 201610
